FAERS Safety Report 4703139-6 (Version None)
Quarter: 2005Q2

REPORT INFORMATION
  Report Type: 
  Country: None (occurrence: None)
  Receive Date: 20050629
  Receipt Date: 20050620
  Transmission Date: 20051028
  Serious: Yes (Death)
  Sender: FDA-Public Use
  Company Number: FR-GLAXOSMITHKLINE-B0385270A

PATIENT
  Age: 37 Year
  Sex: Female
  Weight: 47 kg

DRUGS (8)
  1. SERETIDE [Suspect]
     Indication: ASTHMA
     Dosage: 2PUFF PER DAY
     Route: 065
     Dates: end: 20050513
  2. CORTANCYL [Suspect]
     Indication: ILL-DEFINED DISORDER
     Dosage: 15MG PER DAY
     Route: 048
     Dates: end: 20050513
  3. SOLIAN [Suspect]
     Indication: ILL-DEFINED DISORDER
     Dosage: 1G PER DAY
     Route: 048
     Dates: end: 20050513
  4. DEPAKINE 500 [Suspect]
     Indication: ILL-DEFINED DISORDER
     Dosage: 500MG THREE TIMES PER DAY
     Route: 048
     Dates: end: 20050513
  5. HUMIRA [Suspect]
     Indication: ILL-DEFINED DISORDER
     Dosage: 1UNIT EVERY TWO WEEKS
     Route: 058
     Dates: start: 20050413, end: 20050511
  6. NOVATREX [Suspect]
     Indication: ILL-DEFINED DISORDER
     Dosage: 12.5MG WEEKLY
     Route: 048
  7. OMEPRAZOLE [Concomitant]
     Indication: ILL-DEFINED DISORDER
     Route: 065
  8. SPECIAFOLDINE [Concomitant]
     Indication: ILL-DEFINED DISORDER
     Route: 065

REACTIONS (2)
  - ABDOMINAL PAIN [None]
  - SUDDEN DEATH [None]
